FAERS Safety Report 11514049 (Version 1)
Quarter: 2015Q3

REPORT INFORMATION
  Report Type: Spontaneous
  Country: US (occurrence: US)
  Receive Date: 20150903
  Receipt Date: 20150903
  Transmission Date: 20151125
  Serious: Yes (Other)
  Sender: FDA-Public Use
  Company Number: US-ELI_LILLY_AND_COMPANY-US201211001299

PATIENT
  Age: 74 Year
  Sex: Female

DRUGS (1)
  1. CYMBALTA [Suspect]
     Active Substance: DULOXETINE HYDROCHLORIDE
     Indication: DEPRESSION
     Dosage: UNK, UNKNOWN
     Dates: end: 20121028

REACTIONS (5)
  - Affect lability [Unknown]
  - Dysstasia [Unknown]
  - Blood pressure increased [Unknown]
  - General physical health deterioration [Unknown]
  - Urine odour abnormal [Recovering/Resolving]
